FAERS Safety Report 15721278 (Version 1)
Quarter: 2018Q4

REPORT INFORMATION
  Report Type: Spontaneous
  Country: FR (occurrence: FR)
  Receive Date: 20181214
  Receipt Date: 20181214
  Transmission Date: 20190205
  Serious: Yes (Congenital Anomaly, Other)
  Sender: FDA-Public Use
  Company Number: FR-AUROBINDO-AUR-APL-2018-059983

PATIENT
  Sex: Male

DRUGS (2)
  1. VENLAFAXINE [Concomitant]
     Active Substance: VENLAFAXINE HYDROCHLORIDE
     Indication: MAJOR DEPRESSION
     Dosage: UNK
     Route: 064
     Dates: start: 20170919, end: 20180218
  2. LOSARTAN. [Suspect]
     Active Substance: LOSARTAN
     Indication: HYPERTENSION
     Dosage: UNK
     Route: 064
     Dates: start: 20170919, end: 20180215

REACTIONS (4)
  - Pulmonary hypoplasia [Not Recovered/Not Resolved]
  - Renal aplasia [Not Recovered/Not Resolved]
  - Foetal exposure during pregnancy [Unknown]
  - Spine malformation [Not Recovered/Not Resolved]

NARRATIVE: CASE EVENT DATE: 20180206
